FAERS Safety Report 6104822-0 (Version None)
Quarter: 2009Q1

REPORT INFORMATION
  Report Type: 
  Country: None (occurrence: None)
  Receive Date: 20090306
  Receipt Date: 20090302
  Transmission Date: 20090719
  Serious: Yes (Hospitalization, Other)
  Sender: FDA-Public Use
  Company Number: JP-JNJFOC-20090201849

PATIENT
  Age: 70 Year
  Sex: Male

DRUGS (7)
  1. ITRIZOLE [Suspect]
     Indication: DRUG USE FOR UNKNOWN INDICATION
     Route: 048
  2. HARNAL D [Concomitant]
     Route: 048
  3. PARIET [Concomitant]
     Route: 048
  4. MUCOSTA [Concomitant]
     Route: 048
  5. MAGMITT [Concomitant]
     Route: 048
  6. DIFLUCAN [Concomitant]
     Route: 065
  7. CRAVIT [Concomitant]
     Route: 065

REACTIONS (4)
  - ACCIDENTAL OVERDOSE [None]
  - FAECES DISCOLOURED [None]
  - RENAL IMPAIRMENT [None]
  - WHITE BLOOD CELL COUNT DECREASED [None]
